FAERS Safety Report 8016994-1 (Version None)
Quarter: 2012Q1

REPORT INFORMATION
  Report Type: 
  Country: None (occurrence: None)
  Receive Date: 20120102
  Receipt Date: 20111228
  Transmission Date: 20120608
  Serious: Yes (Hospitalization)
  Sender: FDA-Public Use
  Company Number: PHHY2011VE113510

PATIENT
  Sex: Female

DRUGS (8)
  1. INSULIN [Concomitant]
     Dosage: THREE TIMES FOR DAY
  2. ZOLEDRONOC ACID [Suspect]
     Dosage: 5 MG, UNK
     Route: 042
     Dates: start: 20110408
  3. AMIODARONE HCL [Concomitant]
     Dosage: ONE TABLE DAILY
  4. VITAMINS NOS [Concomitant]
  5. STEROIDS NOS [Concomitant]
  6. CARVEDILOL [Concomitant]
     Dosage: ONE TABLET DAILY
  7. FOLIC ACID [Concomitant]
  8. CALCIBON D [Concomitant]

REACTIONS (2)
  - HAEMOLYSIS [None]
  - HAEMOGLOBIN DECREASED [None]
